FAERS Safety Report 6528846-4 (Version None)
Quarter: 2010Q1

REPORT INFORMATION
  Report Type: 
  Country: None (occurrence: None)
  Receive Date: 20100106
  Receipt Date: 20100104
  Transmission Date: 20100710
  Serious: Yes (Other)
  Sender: FDA-Public Use
  Company Number: US-MYLANLABS-2009S1022091

PATIENT
  Sex: Male

DRUGS (4)
  1. RISPERIDONE [Suspect]
     Route: 048
  2. RISPERIDONE [Suspect]
  3. ALCOHOL [Suspect]
  4. COCAINE [Suspect]
     Route: 055

REACTIONS (2)
  - NECROSIS [None]
  - PRIAPISM [None]
